FAERS Safety Report 5478528-5 (Version None)
Quarter: 2007Q4

REPORT INFORMATION
  Report Type: 
  Country: None (occurrence: None)
  Receive Date: 20071005
  Receipt Date: 20051118
  Transmission Date: 20080405
  Serious: Yes (Death)
  Sender: FDA-Public Use
  Company Number: US-SANOFI-SYNTHELABO-A03200503810

PATIENT
  Age: 83 Year
  Sex: Female

DRUGS (6)
  1. VYTORIN [Concomitant]
     Dosage: UNK
     Route: 065
  2. ASPIRIN [Concomitant]
     Dosage: UNK
     Route: 048
  3. ATENOLOL [Concomitant]
     Dosage: UNK
     Route: 048
  4. IMDUR [Concomitant]
     Dosage: UNK
     Route: 048
  5. PLAVIX [Suspect]
     Indication: STENT PLACEMENT
     Route: 048
  6. NORVASC [Concomitant]
     Dosage: UNK
     Route: 048

REACTIONS (1)
  - DEATH [None]
